FAERS Safety Report 18110465 (Version 2)
Quarter: 2020Q3

REPORT INFORMATION
  Report Type: Spontaneous
  Country: US (occurrence: US)
  Receive Date: 20200804
  Receipt Date: 20200930
  Transmission Date: 20201103
  Serious: Yes (Hospitalization, Other)
  Sender: FDA-Public Use
  Company Number: US-GILEAD-2020-0486802

PATIENT
  Age: 41 Year
  Sex: Male
  Weight: 85 kg

DRUGS (26)
  1. GENVOYA [Concomitant]
     Active Substance: COBICISTAT\ELVITEGRAVIR\EMTRICITABINE\TENOFOVIR ALAFENAMIDE FUMARATE
  2. DOXYCYCLINE HYCLATE. [Concomitant]
     Active Substance: DOXYCYCLINE HYCLATE
     Indication: BACTERIAL INFECTION
     Dosage: UNK
     Dates: start: 20031024, end: 20031113
  3. HYDROCODONE/ACETAMINOPHEN [Concomitant]
     Active Substance: ACETAMINOPHEN\HYDROCODONE
     Dosage: UNK
     Dates: start: 20071205, end: 20080104
  4. AUGMENTINE SR [Concomitant]
     Indication: BACTERIAL INFECTION
     Dosage: UNK
     Dates: start: 20031107, end: 20031217
  5. HYDROCODONE/ACETAMINOPHEN [Concomitant]
     Active Substance: ACETAMINOPHEN\HYDROCODONE
     Dosage: UNK
     Dates: start: 20030410, end: 20030425
  6. HYDROCODONE/ACETAMINOPHEN [Concomitant]
     Active Substance: ACETAMINOPHEN\HYDROCODONE
     Dosage: UNK
     Dates: start: 20031120, end: 20031210
  7. EFAVIRENZ. [Concomitant]
     Active Substance: EFAVIRENZ
  8. CIPRO [Concomitant]
     Active Substance: CIPROFLOXACIN HYDROCHLORIDE
     Indication: BACTERIAL INFECTION
     Dosage: UNK
     Dates: start: 20031121, end: 200312
  9. PREDNISONE. [Concomitant]
     Active Substance: PREDNISONE
     Dosage: UNK
     Dates: start: 20031120, end: 20040410
  10. VIREAD [Suspect]
     Active Substance: TENOFOVIR DISOPROXIL FUMARATE
     Indication: HIV INFECTION
     Dosage: UNK
     Route: 048
     Dates: start: 2001
  11. TRUVADA [Suspect]
     Active Substance: EMTRICITABINE\TENOFOVIR DISOPROXIL FUMARATE
     Indication: HIV INFECTION
     Dosage: UNK
     Route: 048
     Dates: start: 2001
  12. CEPHALEXINE [Concomitant]
     Active Substance: CEPHALEXIN
     Indication: BACTERIAL INFECTION
     Dosage: UNK
     Dates: start: 20030410, end: 20030501
  13. DAPSONE. [Concomitant]
     Active Substance: DAPSONE
     Indication: BACTERIAL INFECTION
     Dosage: UNK
     Dates: start: 20031120, end: 20040226
  14. PROMETH VC WITH CODEINE [Concomitant]
     Indication: PAIN
     Dosage: UNK
     Dates: start: 20030921, end: 20030930
  15. VIREAD [Suspect]
     Active Substance: TENOFOVIR DISOPROXIL FUMARATE
     Dosage: UNK
     Route: 065
     Dates: start: 20031203, end: 2007
  16. ATRIPLA [Suspect]
     Active Substance: EFAVIRENZ\EMTRICITABINE\TENOFOVIR DISOPROXIL FUMARATE
     Dosage: UNK
     Route: 065
     Dates: start: 20071126, end: 2011
  17. EMTRIVA [Concomitant]
     Active Substance: EMTRICITABINE
     Indication: HIV INFECTION
     Dosage: UNK
     Dates: start: 20031203, end: 20041026
  18. SUSTIVA [Concomitant]
     Active Substance: EFAVIRENZ
     Indication: HIV INFECTION
     Dosage: UNK
     Dates: start: 20031203, end: 20040126
  19. COLAZAL [Concomitant]
     Active Substance: BALSALAZIDE DISODIUM
     Indication: GASTROINTESTINAL DISORDER
     Dosage: UNK
     Dates: start: 20070226, end: 20070320
  20. PREDNISONE. [Concomitant]
     Active Substance: PREDNISONE
     Indication: HYPERSENSITIVITY
     Dosage: UNK
     Dates: start: 20031212, end: 20040415
  21. ZITHROMAX [Concomitant]
     Active Substance: AZITHROMYCIN DIHYDRATE
     Indication: BACTERIAL INFECTION
     Dosage: UNK
     Dates: start: 20050607, end: 20050610
  22. REYATAZ [Concomitant]
     Active Substance: ATAZANAVIR SULFATE
  23. TRUVADA [Suspect]
     Active Substance: EMTRICITABINE\TENOFOVIR DISOPROXIL FUMARATE
     Dosage: UNK
     Route: 065
     Dates: start: 2011, end: 2018
  24. BALSALAZIDE [Concomitant]
     Active Substance: BALSALAZIDE
     Indication: GASTROINTESTINAL DISORDER
     Dosage: UNK
     Dates: start: 20121119, end: 20130127
  25. ATRIPLA [Suspect]
     Active Substance: EFAVIRENZ\EMTRICITABINE\TENOFOVIR DISOPROXIL FUMARATE
     Indication: HIV INFECTION
     Dosage: UNK
     Route: 048
     Dates: start: 2001
  26. LEVOFLOXACIN. [Concomitant]
     Active Substance: LEVOFLOXACIN
     Indication: BACTERIAL INFECTION
     Dosage: UNK
     Dates: start: 20121018, end: 20121028

REACTIONS (11)
  - Pain [Unknown]
  - Chronic kidney disease [Not Recovered/Not Resolved]
  - Dizziness [Unknown]
  - Emotional distress [Unknown]
  - Loss of consciousness [Unknown]
  - Pyrexia [Unknown]
  - Anhedonia [Unknown]
  - Ankle fracture [Unknown]
  - Syncope [Unknown]
  - Abdominal pain [Unknown]
  - Anxiety [Unknown]

NARRATIVE: CASE EVENT DATE: 20130508
